FAERS Safety Report 14959764 (Version 5)
Quarter: 2018Q4

REPORT INFORMATION
  Report Type: Report from Study
  Country: FR (occurrence: FR)
  Receive Date: 20180531
  Receipt Date: 20181116
  Transmission Date: 20190204
  Serious: Yes (Hospitalization, Other)
  Sender: FDA-Public Use
  Company Number: FR-PFIZER INC-2017042027

PATIENT
  Age: 65 Year
  Sex: Male
  Weight: 86 kg

DRUGS (15)
  1. SUNITINIB MALATE. [Suspect]
     Active Substance: SUNITINIB MALATE
     Dosage: 37.5 MG, CYCLIC, 2 WEEKS ON/1 WEEK OFF
     Dates: start: 20160922, end: 20180315
  2. PARACETAMOL [Concomitant]
     Active Substance: ACETAMINOPHEN
     Indication: PAIN
     Dosage: UNK
     Dates: start: 201712
  3. DEXERYL /01579901/ [Concomitant]
     Active Substance: GLYCERIN\MINERAL OIL\PETROLATUM
     Indication: DRY SKIN
     Dosage: UNK
     Dates: start: 201607
  4. PRAVASTATINE [Concomitant]
     Active Substance: PRAVASTATIN
     Indication: DYSLIPIDAEMIA
     Dosage: UNK
  5. INNOHEP [Concomitant]
     Active Substance: TINZAPARIN SODIUM
     Indication: COAGULOPATHY
     Dosage: UNK
     Dates: start: 201803
  6. IMODIUM [Concomitant]
     Active Substance: LOPERAMIDE HYDROCHLORIDE
     Indication: DIARRHOEA
     Dosage: UNK
     Dates: start: 201607
  7. PRIMPERAN [Concomitant]
     Active Substance: METOCLOPRAMIDE HYDROCHLORIDE
     Indication: NAUSEA
     Dosage: UNK
     Dates: start: 201607
  8. CANDESARTAN. [Concomitant]
     Active Substance: CANDESARTAN
     Indication: HYPERTENSION
     Dosage: UNK
     Dates: end: 201804
  9. ARIXTRA [Concomitant]
     Active Substance: FONDAPARINUX SODIUM
     Indication: THROMBOSIS
     Dosage: UNK
     Dates: start: 201608
  10. ESOMEPRAZOLE. [Concomitant]
     Active Substance: ESOMEPRAZOLE MAGNESIUM
     Indication: GASTROOESOPHAGEAL REFLUX DISEASE
     Dosage: UNK
     Dates: start: 201607
  11. TIORFAN [Concomitant]
     Active Substance: RACECADOTRIL
     Indication: DIARRHOEA
     Dosage: UNK
     Dates: start: 201612
  12. LEVOTHYROX [Concomitant]
     Active Substance: LEVOTHYROXINE
     Indication: HYPOTHYROIDISM
     Dosage: UNK
     Dates: start: 201703, end: 201804
  13. SUNITINIB MALATE. [Suspect]
     Active Substance: SUNITINIB MALATE
     Indication: METASTATIC RENAL CELL CARCINOMA
     Dosage: 50 MG, CYCLIC, 4WEEKS ON/ 2 WEEKS OFF
     Dates: start: 20160711, end: 20160818
  14. VENOFER [Concomitant]
     Active Substance: IRON SUCROSE
     Indication: IRON DEFICIENCY
     Dosage: UNK
     Dates: start: 201609
  15. PENICILLIN /00000901/ [Concomitant]
     Active Substance: PENICILLIN G
     Indication: FURUNCLE
     Dosage: UNK
     Dates: start: 201608, end: 201609

REACTIONS (42)
  - Deep vein thrombosis [Recovering/Resolving]
  - Neutropenia [Recovered/Resolved]
  - Vision blurred [Recovered/Resolved]
  - Yellow skin [Not Recovered/Not Resolved]
  - Asthenia [Not Recovered/Not Resolved]
  - Hypertension [Recovering/Resolving]
  - Neutropenia [Recovered/Resolved]
  - Decreased appetite [Recovered/Resolved]
  - Stomatitis [Recovering/Resolving]
  - Syncope [Recovered/Resolved]
  - Mucosal inflammation [Not Recovered/Not Resolved]
  - Diarrhoea [Recovered/Resolved]
  - Palmar-plantar erythrodysaesthesia syndrome [Recovered/Resolved]
  - Decreased appetite [Recovered/Resolved]
  - Nausea [Not Recovered/Not Resolved]
  - Deep vein thrombosis [Recovering/Resolving]
  - Presyncope [Recovered/Resolved]
  - Hypertension [Not Recovered/Not Resolved]
  - Anaemia [Not Recovered/Not Resolved]
  - Dry skin [Not Recovered/Not Resolved]
  - Asthenia [Not Recovered/Not Resolved]
  - Dry mouth [Not Recovered/Not Resolved]
  - Epistaxis [Recovered/Resolved]
  - Hair colour changes [Not Recovered/Not Resolved]
  - Asthenia [Not Recovered/Not Resolved]
  - Dry eye [Not Recovered/Not Resolved]
  - Malaise [Recovered/Resolved]
  - Vertigo [Not Recovered/Not Resolved]
  - Palmar-plantar erythrodysaesthesia syndrome [Recovered/Resolved]
  - Epistaxis [Recovered/Resolved]
  - Neutropenia [Recovered/Resolved]
  - Asthenia [Recovering/Resolving]
  - Abdominal pain upper [Recovered/Resolved]
  - Headache [Recovered/Resolved]
  - Dysgeusia [Not Recovered/Not Resolved]
  - Diarrhoea [Not Recovered/Not Resolved]
  - Hypothyroidism [Recovering/Resolving]
  - Pulmonary embolism [Recovering/Resolving]
  - Traumatic haematoma [Not Recovered/Not Resolved]
  - Oedema peripheral [Recovered/Resolved]
  - Palmar-plantar erythrodysaesthesia syndrome [Recovered/Resolved]
  - Epistaxis [Recovered/Resolved]

NARRATIVE: CASE EVENT DATE: 20160721
